FAERS Safety Report 10064716 (Version 2)
Quarter: 2014Q4

REPORT INFORMATION
  Report Type: Spontaneous
  Country: NL (occurrence: NL)
  Receive Date: 20140408
  Receipt Date: 20141009
  Transmission Date: 20150528
  Serious: Yes (Hospitalization, Other)
  Sender: FDA-Public Use
  Company Number: NL-SA-2014SA043583

PATIENT
  Sex: Female

DRUGS (6)
  1. DDAVP [Suspect]
     Active Substance: DESMOPRESSIN ACETATE
     Indication: DIABETES INSIPIDUS
     Dosage: ROUTE: INTRANASAL?0.05 ML OF 0.9% SALINE WAS ADDED TO 0.05 ML OF THE 4 MCG/L DESMOPRESSIN SOLUTION
     Route: 045
  2. SALINE [Concomitant]
     Active Substance: SODIUM CHLORIDE
     Indication: HYPOTENSION
     Dosage: DOSE:40 MILLILITRE(S)/KILOGRAM
  3. GENTAMICIN. [Concomitant]
     Active Substance: GENTAMICIN
     Indication: RESPIRATORY DISORDER NEONATAL
  4. PENICILLIN NOS [Concomitant]
     Active Substance: PENICILLIN
     Indication: RESPIRATORY DISORDER NEONATAL
  5. DDAVP [Suspect]
     Active Substance: DESMOPRESSIN ACETATE
     Indication: DIABETES INSIPIDUS
     Dosage: ROUTE: INTRANASAL
     Route: 045
  6. LUNG SURFACTANTS [Concomitant]
     Indication: RESPIRATORY DISTRESS

REACTIONS (3)
  - Anuria [Recovered/Resolved]
  - Oliguria [Recovered/Resolved]
  - Blood sodium abnormal [Recovered/Resolved]
